FAERS Safety Report 8406826-1 (Version None)
Quarter: 2012Q2

REPORT INFORMATION
  Report Type: 
  Country: None (occurrence: None)
  Receive Date: 20120529
  Receipt Date: 20120515
  Transmission Date: 20120825
  Serious: Yes (Other)
  Sender: FDA-Public Use
  Company Number: LTI2011A00119

PATIENT
  Age: 59 Year
  Sex: Female

DRUGS (7)
  1. ACTOS [Suspect]
     Indication: TYPE 2 DIABETES MELLITUS
     Dosage: 15 MG (15 MG,1 IN 1 D) ORAL
     Route: 048
     Dates: start: 20050101, end: 20110103
  2. RAMIPRIL [Concomitant]
  3. DIPROSONE (BETAMETHASONE SODIUM PHOSPHATE) [Concomitant]
  4. ACEBUTOLOL [Concomitant]
  5. METFORMIN HCL [Concomitant]
  6. GLIMEPIRIDE [Concomitant]
  7. IXPRIM (PARACETAMOL, TRAMADOL HYDROCHLORIDE) [Concomitant]

REACTIONS (2)
  - UTERINE CANCER [None]
  - ABDOMINAL PAIN [None]
